FAERS Safety Report 20719044 (Version 1)
Quarter: 2022Q2

REPORT INFORMATION
  Report Type: Spontaneous
  Country: US (occurrence: None)
  Receive Date: 20220415
  Receipt Date: 20220415
  Transmission Date: 20220721
  Serious: Yes (Hospitalization)
  Sender: FDA-Public Use
  Company Number: None

PATIENT
  Age: 18 Year
  Sex: Male

DRUGS (6)
  1. COLISTIMETHATE SODIUM [Suspect]
     Active Substance: COLISTIMETHATE SODIUM
     Indication: Cystic fibrosis
     Dosage: MIX 1 VIAL WITH 2 ML OF NORMAL SALINE AND ADD TO NEBULIZER CAP. ADD ADDITIONAL 2 ML OF NORMAL SALINE
     Route: 055
  2. AZITHROMYCIN [Concomitant]
     Active Substance: AZITHROMYCIN
  3. ESOMEPRAZOLE GRA [Concomitant]
  4. PROAIR HFA [Concomitant]
     Active Substance: ALBUTEROL SULFATE
  5. PULMOZYME SOL [Concomitant]
  6. VITAMIN D3 CAP [Concomitant]

REACTIONS (3)
  - Hospitalisation [None]
  - Cystic fibrosis [None]
  - Condition aggravated [None]

NARRATIVE: CASE EVENT DATE: 20220307
